FAERS Safety Report 23095863 (Version 4)
Quarter: 2023Q4

REPORT INFORMATION
  Report Type: Other
  Country: EG (occurrence: EG)
  Receive Date: 20231023
  Receipt Date: 20231206
  Transmission Date: 20240110
  Serious: Yes (Disabling)
  Sender: FDA-Public Use
  Company Number: EG-002147023-NVSC2023EG017008

PATIENT
  Age: 51 Year
  Sex: Female

DRUGS (6)
  1. XOLAIR [Suspect]
     Active Substance: OMALIZUMAB
     Indication: Urticaria
     Route: 058
     Dates: start: 2018
  2. XOLAIR [Suspect]
     Active Substance: OMALIZUMAB
     Indication: Hypersensitivity
     Route: 058
  3. XOLAIR [Suspect]
     Active Substance: OMALIZUMAB
     Dosage: (STARTED SINCE 2017 OR 2018)
     Route: 058
  4. XOLAIR [Suspect]
     Active Substance: OMALIZUMAB
     Route: 058
  5. PERINDOPRIL [Concomitant]
     Active Substance: PERINDOPRIL
     Indication: Hypertension
     Dosage: 1 DOSAGE FORM, QD
     Dates: start: 2019
  6. DICLOFENAC SODIUM [Concomitant]
     Active Substance: DICLOFENAC\DICLOFENAC SODIUM
     Indication: Bone pain
     Dosage: 1 DOSAGE FORM, QD (THE PATIENT COULD NOT REMEMBER THE START DATE BUT WAS USING FROM A LONG PERIOD)

REACTIONS (9)
  - Urticaria [Not Recovered/Not Resolved]
  - Pruritus [Not Recovered/Not Resolved]
  - Fatigue [Not Recovered/Not Resolved]
  - Feeling abnormal [Unknown]
  - Nervousness [Unknown]
  - Hypovitaminosis [Recovering/Resolving]
  - Umbilical hernia [Unknown]
  - Concomitant disease aggravated [Unknown]
  - Off label use [Unknown]

NARRATIVE: CASE EVENT DATE: 20190101
